FAERS Safety Report 9915892 (Version 1)
Quarter: 2014Q1

REPORT INFORMATION
  Report Type: Spontaneous
  Country: US (occurrence: None)
  Receive Date: 20140220
  Receipt Date: 20140220
  Transmission Date: 20141002
  Serious: Yes (Hospitalization)
  Sender: FDA-Public Use
  Company Number: None

PATIENT
  Age: 68 Year
  Sex: Female

DRUGS (2)
  1. BUPROPION XL [Suspect]
     Indication: DEPRESSION
     Route: 048
     Dates: start: 20131112, end: 20140106
  2. VENLAFAXINE XL [Concomitant]

REACTIONS (2)
  - Crying [None]
  - Suicidal ideation [None]
